FAERS Safety Report 14204918 (Version 2)
Quarter: 2018Q3

REPORT INFORMATION
  Report Type: Spontaneous
  Country: GB (occurrence: GB)
  Receive Date: 20171120
  Receipt Date: 20180711
  Transmission Date: 20181010
  Serious: Yes (Other)
  Sender: FDA-Public Use
  Company Number: GB-ALIMERA SCIENCES LIMITED-GB-IL-2017-003805

PATIENT

DRUGS (2)
  1. ILUVIEN [Suspect]
     Active Substance: FLUOCINOLONE ACETONIDE
     Indication: DIABETIC RETINAL OEDEMA
     Dosage: 0.25 ?G, QD, LEFT EYE
     Route: 031
     Dates: start: 20150909
  2. LUCENTIS [Concomitant]
     Active Substance: RANIBIZUMAB
     Indication: MACULOPATHY
     Dosage: 9 DOSES

REACTIONS (4)
  - Intraocular pressure increased [Unknown]
  - Trabeculectomy [Unknown]
  - Optic disc disorder [Recovering/Resolving]
  - Optic nerve cupping [Recovering/Resolving]

NARRATIVE: CASE EVENT DATE: 20160426
